FAERS Safety Report 10963407 (Version 2)
Quarter: 2015Q2

REPORT INFORMATION
  Report Type: Spontaneous
  Country: US (occurrence: None)
  Receive Date: 20150326
  Receipt Date: 20150403
  Transmission Date: 20150821
  Serious: Yes (Hospitalization)
  Sender: FDA-Public Use
  Company Number: 150088

PATIENT
  Age: 77 Year
  Sex: Female
  Weight: 72.58 kg

DRUGS (1)
  1. SUPREP BOWEL PREP [Suspect]
     Active Substance: MAGNESIUM SULFATE\POTASSIUM SULFATE\SODIUM SULFATE
     Indication: COLONOSCOPY
     Dosage: 1 X 6 OZ. BOTTLE 1X PO
     Route: 048
     Dates: start: 20150317, end: 20150317

REACTIONS (6)
  - Malaise [None]
  - Faeces discoloured [None]
  - Diarrhoea [None]
  - Vomiting [None]
  - Haematemesis [None]
  - Nausea [None]

NARRATIVE: CASE EVENT DATE: 20150317
